FAERS Safety Report 9372527 (Version 1)
Quarter: 2013Q2

REPORT INFORMATION
  Report Type: Report from Study
  Country: US (occurrence: US)
  Receive Date: 20130627
  Receipt Date: 20130627
  Transmission Date: 20140414
  Serious: Yes (Other)
  Sender: FDA-Public Use
  Company Number: US-MYLANLABS-2013S1000504

PATIENT
  Age: 49 Year
  Sex: Male
  Weight: 106.14 kg

DRUGS (3)
  1. CLOZAPINE TABLETS [Suspect]
     Indication: SCHIZOAFFECTIVE DISORDER
     Route: 048
     Dates: end: 20130107
  2. COGENTIN [Concomitant]
  3. DEPAKOTE ER [Concomitant]

REACTIONS (1)
  - Granulocytopenia [Recovered/Resolved]
